FAERS Safety Report 5415672-2 (Version None)
Quarter: 2007Q3

REPORT INFORMATION
  Report Type: 
  Country: None (occurrence: None)
  Receive Date: 20070815
  Receipt Date: 20070601
  Transmission Date: 20080115
  Serious: Yes (Other)
  Sender: FDA-Public Use
  Company Number: US-BRISTOL-MYERS SQUIBB COMPANY-13730312

PATIENT
  Age: 53 Year
  Sex: Male

DRUGS (1)
  1. TEQUIN [Suspect]
     Indication: CELLULITIS
     Dates: start: 20030701

REACTIONS (1)
  - TENDON RUPTURE [None]
